FAERS Safety Report 12207402 (Version 1)
Quarter: 2016Q1

REPORT INFORMATION
  Report Type: Spontaneous
  Country: GB (occurrence: GB)
  Receive Date: 20160324
  Receipt Date: 20160324
  Transmission Date: 20160526
  Serious: Yes (Other)
  Sender: FDA-Public Use
  Company Number: GB-PFIZER INC-2016166324

PATIENT
  Sex: Male

DRUGS (4)
  1. IBUPROFEN. [Suspect]
     Active Substance: IBUPROFEN
     Dosage: UNK UNK, DAILY
  2. DIHYDROCODEINE [Interacting]
     Active Substance: DIHYDROCODEINE
     Dosage: UNK UNK, DAILY
  3. PARACETAMOL [Suspect]
     Active Substance: ACETAMINOPHEN
     Dosage: UNK UNK, DAILY
  4. CODEINE [Suspect]
     Active Substance: CODEINE
     Dosage: UNK UNK, DAILY

REACTIONS (4)
  - Liver disorder [Unknown]
  - Alcohol interaction [Unknown]
  - Renal disorder [Unknown]
  - Prescription drug used without a prescription [Unknown]
